FAERS Safety Report 8877052 (Version 1)
Quarter: 2012Q4

REPORT INFORMATION
  Report Type: 
  Country: US (occurrence: US)
  Receive Date: 20121023
  Receipt Date: 20121023
  Transmission Date: 20130627
  Serious: No
  Sender: FDA-Public Use
  Company Number: US-AMGEN-USASP2012056033

PATIENT
  Age: 40 Year
  Sex: Female
  Weight: 68.03 kg

DRUGS (8)
  1. ENBREL [Suspect]
     Indication: PRODUCT USED FOR UNKNOWN INDICATION
     Dosage: 50 mg, qwk
     Route: 058
  2. METHOTREXATE [Concomitant]
     Dosage: 2.5 mg, UNK
  3. PLAQUENIL                          /00072602/ [Concomitant]
     Dosage: 200 mg, UNK
  4. CALCIUM +D                         /00944201/ [Concomitant]
     Dosage: UNK
  5. MULTIVITAMINS, PLAIN [Concomitant]
     Dosage: UNK
  6. FOLIC ACID [Concomitant]
     Dosage: UNK
  7. IRON [Concomitant]
     Dosage: 325 mg, UNK
  8. NABUMETONE [Concomitant]
     Dosage: 750 mg, UNK

REACTIONS (1)
  - Injection site pain [Unknown]
